FAERS Safety Report 5370629-5 (Version None)
Quarter: 2007Q2

REPORT INFORMATION
  Report Type: 
  Country: None (occurrence: None)
  Receive Date: 20070618
  Receipt Date: 20060713
  Transmission Date: 20071010
  Serious: Yes (Hospitalization, Other)
  Sender: FDA-Public Use
  Company Number: PHEH2006US04244

PATIENT
  Age: 57 Year
  Sex: Female

DRUGS (4)
  1. GLEEVEC [Suspect]
     Indication: CHRONIC MYELOID LEUKAEMIA
     Dosage: 600 MG, QD, ORAL; 800 MG, QD, ORAL; 800 MG, QD, ORAL
     Route: 048
     Dates: start: 20060301, end: 20060301
  2. GLEEVEC [Suspect]
     Indication: CHRONIC MYELOID LEUKAEMIA
     Dosage: 600 MG, QD, ORAL; 800 MG, QD, ORAL; 800 MG, QD, ORAL
     Route: 048
     Dates: end: 20060301
  3. FOSAMAX [Concomitant]
  4. DOCUSATE (DOCUSATE) [Concomitant]

REACTIONS (17)
  - ANIMAL BITE [None]
  - ANOREXIA [None]
  - BONE MARROW FAILURE [None]
  - CELLULITIS [None]
  - HAEMATOCRIT DECREASED [None]
  - HEADACHE [None]
  - HYPERREFLEXIA [None]
  - MALAISE [None]
  - NAUSEA [None]
  - NECK PAIN [None]
  - PANCYTOPENIA [None]
  - PHOTOPHOBIA [None]
  - PLATELET COUNT DECREASED [None]
  - SUBDURAL HAEMATOMA [None]
  - URINARY TRACT INFECTION BACTERIAL [None]
  - VOMITING [None]
  - WHITE BLOOD CELL COUNT DECREASED [None]
